FAERS Safety Report 24988556 (Version 2)
Quarter: 2025Q4

REPORT INFORMATION
  Report Type: Spontaneous
  Country: EU (occurrence: EU)
  Receive Date: 20250220
  Receipt Date: 20251215
  Transmission Date: 20260117
  Serious: Yes (Hospitalization)
  Sender: VELOXIS PHARMACEUTICALS
  Company Number: EU-AFSSAPS-PA2025000169

PATIENT
  Age: 53 Year
  Sex: Female
  Weight: 73 kg

DRUGS (9)
  1. TACROLIMUS [Suspect]
     Active Substance: TACROLIMUS
     Indication: Prophylaxis against transplant rejection
     Dosage: 6.5 MILLIGRAM, QD
     Route: 061
  2. VALGANCICLOVIR [Suspect]
     Active Substance: VALGANCICLOVIR
     Indication: Antibiotic prophylaxis
     Dosage: 900 MILLIGRAM, QD
     Route: 061
  3. LOVENOX [Suspect]
     Active Substance: ENOXAPARIN SODIUM
     Indication: Thrombosis prophylaxis
     Dosage: 4000 INTERNATIONAL UNIT, QD (4000 IU ANTI-XA/0.4 ML, SOLUTION FOR INJECTION IN PRE-FILLED SYRINGE)
  4. CELLCEPT [Suspect]
     Active Substance: MYCOPHENOLATE MOFETIL
     Indication: Prophylaxis against transplant rejection
     Dosage: 1 GRAM, QD
     Route: 061
  5. BACTRIM [Suspect]
     Active Substance: SULFAMETHOXAZOLE\TRIMETHOPRIM
     Indication: Antibiotic prophylaxis
     Dosage: 1 DOSAGE FORM, QD
     Route: 061
     Dates: start: 20250115, end: 20250203
  6. LANSOPRAZOLE [Suspect]
     Active Substance: LANSOPRAZOLE
     Indication: Dyspepsia
     Dosage: 15 MILLIGRAM, QD
     Route: 061
  7. ERYTHROMYCIN [Suspect]
     Active Substance: ERYTHROMYCIN
     Indication: Antibiotic prophylaxis
     Dosage: 1 DOSAGE FORM, QD
     Dates: start: 20250118, end: 20250130
  8. AMITRIPTYLINE HYDROCHLORIDE [Suspect]
     Active Substance: AMITRIPTYLINE HYDROCHLORIDE
     Indication: Anxiety
     Dosage: 10 MILLIGRAM, QD (DROPS)
     Route: 061
     Dates: start: 20250127, end: 20250130
  9. AUGMENTIN [Suspect]
     Active Substance: AMOXICILLIN\CLAVULANATE POTASSIUM
     Indication: Infection
     Dosage: 2 DOSAGE FORM, QD
     Route: 061
     Dates: start: 20250130, end: 20250203

REACTIONS (1)
  - Mixed liver injury [Not Recovered/Not Resolved]

NARRATIVE: CASE EVENT DATE: 20250130
